FAERS Safety Report 9977445 (Version 1)
Quarter: 2014Q1

REPORT INFORMATION
  Report Type: Report from Study
  Country: US (occurrence: US)
  Receive Date: 20140306
  Receipt Date: 20140306
  Transmission Date: 20141002
  Serious: No
  Sender: FDA-Public Use
  Company Number: US-ABBVIE-13P-163-1162481-00

PATIENT
  Age: 42 Year
  Sex: Female

DRUGS (11)
  1. HUMIRA [Suspect]
     Indication: CROHN^S DISEASE
     Dates: start: 20131009, end: 20131009
  2. HUMIRA [Suspect]
     Dates: start: 20131023, end: 20131023
  3. HUMIRA [Suspect]
     Route: 058
     Dates: start: 2013
  4. DESONIDE [Concomitant]
     Indication: PRODUCT USED FOR UNKNOWN INDICATION
  5. PENTASA [Concomitant]
     Indication: CROHN^S DISEASE
  6. FIBERCON [Concomitant]
     Indication: PRODUCT USED FOR UNKNOWN INDICATION
     Dosage: EACH MORNING
  7. METOPROLOL [Concomitant]
     Indication: HYPERTENSION
     Dosage: AT BEDTIME
  8. LEVOTHYROXINE [Concomitant]
     Indication: THYROID DISORDER
  9. ZOVIA [Concomitant]
     Indication: CONTRACEPTION
     Dosage: EVERY DAY
  10. PAXIL [Concomitant]
     Indication: DEPRESSION
  11. B12 [Concomitant]
     Indication: VITAMIN B12 DEFICIENCY

REACTIONS (4)
  - Swelling face [Recovered/Resolved]
  - Eye swelling [Recovered/Resolved]
  - Tremor [Recovered/Resolved]
  - Hypersensitivity [Recovered/Resolved]
